FAERS Safety Report 10466541 (Version 4)
Quarter: 2014Q4

REPORT INFORMATION
  Report Type: Spontaneous
  Country: AU (occurrence: AU)
  Receive Date: 20140922
  Receipt Date: 20141130
  Transmission Date: 20150528
  Serious: Yes (Life-Threatening, Hospitalization, Disabling, Other)
  Sender: FDA-Public Use
  Company Number: PHHY2014AU122757

PATIENT
  Age: 43 Year
  Sex: Female

DRUGS (2)
  1. GILENYA [Suspect]
     Active Substance: FINGOLIMOD HYDROCHLORIDE
     Indication: MULTIPLE SCLEROSIS
     Dosage: 0.5 MG, QD (DAILY)
     Route: 048
     Dates: start: 20130412, end: 20140727
  2. GILENYA [Suspect]
     Active Substance: FINGOLIMOD HYDROCHLORIDE
     Dosage: 0.5 MG, QD (DAILY)
     Route: 048
     Dates: start: 20140819

REACTIONS (15)
  - Abdominal rigidity [Unknown]
  - Haemoglobin decreased [Unknown]
  - Eosinophil count increased [Unknown]
  - Blood urea decreased [Unknown]
  - Peritonitis [Unknown]
  - C-reactive protein increased [Unknown]
  - Abdominal discomfort [Unknown]
  - Red blood cell count decreased [Unknown]
  - Red cell distribution width increased [Unknown]
  - Mean platelet volume decreased [Unknown]
  - Septic shock [Recovered/Resolved with Sequelae]
  - Haematocrit decreased [Unknown]
  - Platelet count increased [Unknown]
  - Rectal perforation [Unknown]
  - Musculoskeletal pain [Unknown]

NARRATIVE: CASE EVENT DATE: 20140727
